FAERS Safety Report 13753420 (Version 1)
Quarter: 2017Q3

REPORT INFORMATION
  Report Type: Spontaneous
  Country: IT (occurrence: IT)
  Receive Date: 20170713
  Receipt Date: 20170713
  Transmission Date: 20171127
  Serious: Yes (Hospitalization)
  Sender: FDA-Public Use
  Company Number: IT-TEVA-784732ACC

PATIENT
  Age: 65 Year
  Weight: 73 kg

DRUGS (10)
  1. FLUOROURACILE AHCL - ACCORD HEALTHCARE LIMITED [Suspect]
     Active Substance: FLUOROURACIL
     Indication: ADENOCARCINOMA PANCREAS
     Dosage: 720 MG TOTAL
     Route: 040
     Dates: start: 20170529, end: 20170529
  2. ATROPINA SOLFATO [Concomitant]
     Indication: ANTIDIARRHOEAL SUPPORTIVE CARE
     Route: 058
     Dates: start: 20170529, end: 20170529
  3. IRINOTECAN AUROBINDO - AUROBINDO PHARMA (ITALIA) S.R.L . [Suspect]
     Active Substance: IRINOTECAN
     Indication: ADENOCARCINOMA PANCREAS
     Dosage: 324 MG TOTAL
     Route: 041
     Dates: start: 20170529, end: 20170529
  4. CALCIO LEVOFOLINATO TEVA - TEVA ITALIA S.R.L . [Suspect]
     Active Substance: LEVOLEUCOVORIN CALCIUM
     Indication: ADENOCARCINOMA PANCREAS
     Dosage: 720 MG TOTAL
     Route: 041
     Dates: start: 20170529, end: 20170529
  5. OXALIPLATINO ACCORD HEALTHCARE - ACCORD HEALTHCARE LIMITED [Suspect]
     Active Substance: OXALIPLATIN
     Indication: ADENOCARCINOMA PANCREAS
     Dosage: 153 MG TOTAL
     Route: 040
     Dates: start: 20170529, end: 20170529
  6. ONDANSETRON [Concomitant]
     Active Substance: ONDANSETRON
     Indication: ANTIEMETIC SUPPORTIVE CARE
     Dosage: 8 MG
     Route: 041
     Dates: start: 20170529, end: 20170529
  7. SOLDESAM [Concomitant]
     Active Substance: DEXAMETHASONE
     Indication: SUPPLEMENTATION THERAPY
     Dosage: 8 MG
     Route: 041
     Dates: start: 20170529, end: 20170529
  8. FLUOROURACILE AHCL - ACCORD HEALTHCARE LIMITED [Suspect]
     Active Substance: FLUOROURACIL
     Indication: ADENOCARCINOMA PANCREAS
     Dosage: 3600 MG TOTAL
     Route: 041
     Dates: start: 20170529, end: 20170531
  9. RANITIDINE. [Concomitant]
     Active Substance: RANITIDINE
     Indication: SUPPLEMENTATION THERAPY
     Dosage: 50 MG
     Dates: start: 20170529, end: 20170529
  10. CHLORPHENAMINE MALEATE [Concomitant]
     Active Substance: CHLORPHENIRAMINE MALEATE
     Indication: SUPPLEMENTATION THERAPY
     Dosage: 10 MG
     Dates: start: 20170529, end: 20170529

REACTIONS (4)
  - Thrombocytopenia [Recovered/Resolved]
  - Neutropenia [Recovered/Resolved]
  - Diarrhoea [Recovered/Resolved]
  - Dehydration [Recovered/Resolved]

NARRATIVE: CASE EVENT DATE: 20170604
